FAERS Safety Report 5729862-2 (Version None)
Quarter: 2008Q2

REPORT INFORMATION
  Report Type: 
  Country: None (occurrence: None)
  Receive Date: 20080502
  Receipt Date: 20080418
  Transmission Date: 20081010
  Serious: Yes (Hospitalization, Other)
  Sender: FDA-Public Use
  Company Number: 2008S1006703

PATIENT
  Age: 18 Year
  Sex: Female

DRUGS (2)
  1. AZATHIOPRINE [Suspect]
     Indication: IMMUNOSUPPRESSION
  2. TACROLIMUS [Suspect]
     Indication: IMMUNOSUPPRESSION

REACTIONS (8)
  - BILIARY ANASTOMOSIS COMPLICATION [None]
  - BLOOD CULTURE POSITIVE [None]
  - DRUG LEVEL INCREASED [None]
  - ENTEROCOCCAL INFECTION [None]
  - FISTULA [None]
  - LIVER ABSCESS [None]
  - POST PROCEDURAL COMPLICATION [None]
  - TRANSPLANT REJECTION [None]
